FAERS Safety Report 23570709 (Version 1)
Quarter: 2024Q1

REPORT INFORMATION
  Report Type: Spontaneous
  Country: US (occurrence: US)
  Receive Date: 20240227
  Receipt Date: 20240227
  Transmission Date: 20240410
  Serious: No
  Sender: FDA-Public Use
  Company Number: US-009507513-2402USA004822

PATIENT
  Sex: Male

DRUGS (2)
  1. KEYTRUDA [Suspect]
     Active Substance: PEMBROLIZUMAB
     Indication: Bladder cancer stage IV
  2. PADCEV [Suspect]
     Active Substance: ENFORTUMAB VEDOTIN-EJFV
     Indication: Bladder cancer stage IV

REACTIONS (6)
  - Asthenia [Unknown]
  - Fatigue [Unknown]
  - Decreased appetite [Unknown]
  - Diarrhoea [Unknown]
  - Liver disorder [Unknown]
  - Adverse event [Unknown]
